FAERS Safety Report 6983395-4 (Version None)
Quarter: 2010Q3

REPORT INFORMATION
  Report Type: 
  Country: None (occurrence: None)
  Receive Date: 20100914
  Receipt Date: 20100914
  Transmission Date: 20110219
  Serious: Yes (Death, Other)
  Sender: FDA-Public Use
  Company Number: None

PATIENT
  Age: 58 Year
  Sex: Male

DRUGS (1)
  1. LUNESTA [Suspect]
     Indication: INSOMNIA
     Dosage: ONE A DAY AT BEDTIME PO
     Route: 048
     Dates: start: 20100113, end: 20100116

REACTIONS (2)
  - GUN SHOT WOUND [None]
  - SOMNAMBULISM [None]
